FAERS Safety Report 4933017-9 (Version None)
Quarter: 2006Q1

REPORT INFORMATION
  Report Type: 
  Country: None (occurrence: None)
  Receive Date: 20060301
  Receipt Date: 20060220
  Transmission Date: 20060701
  Serious: Yes (Other)
  Sender: FDA-Public Use
  Company Number: 2006025055

PATIENT
  Age: 76 Year
  Sex: Male
  Weight: 90.7194 kg

DRUGS (1)
  1. LYRICA [Suspect]
     Indication: HERPES ZOSTER
     Dosage: 100 MG, 1 D, ORAL
     Route: 048
     Dates: start: 20051101, end: 20060101

REACTIONS (7)
  - COORDINATION ABNORMAL [None]
  - DRUG INEFFECTIVE [None]
  - FALL [None]
  - GAIT DISTURBANCE [None]
  - OEDEMA PERIPHERAL [None]
  - RIB FRACTURE [None]
  - ROAD TRAFFIC ACCIDENT [None]
